FAERS Safety Report 7531006-1 (Version None)
Quarter: 2011Q2

REPORT INFORMATION
  Report Type: 
  Country: None (occurrence: None)
  Receive Date: 20110608
  Receipt Date: 20091107
  Transmission Date: 20111010
  Serious: Yes (Other)
  Sender: FDA-Public Use
  Company Number: US-BAYER-200938950NA

PATIENT
  Age: 40 Year
  Sex: Female
  Weight: 85 kg

DRUGS (7)
  1. PLAVIX [Concomitant]
     Dosage: 75 MG, QD
  2. ZEBETA [Concomitant]
     Dosage: 5 MG, QD
  3. HUMULIN 70/30 [Concomitant]
     Dosage: 60 UNITS EVERY MORNING
  4. HUMULIN 70/30 [Concomitant]
     Dosage: 18-20 UNITS EVERY EVENING
  5. TRASYLOL [Suspect]
     Indication: PRODUCT USED FOR UNKNOWN INDICATION
     Route: 042
     Dates: start: 20050504
  6. PRAVACHOL [Concomitant]
     Dosage: 20 MG, QD
  7. ACETYLSALICYLIC ACID SRT [Concomitant]
     Dosage: 325 MG, QD

REACTIONS (10)
  - FEAR [None]
  - RENAL IMPAIRMENT [None]
  - INJURY [None]
  - RENAL INJURY [None]
  - ANXIETY [None]
  - UNEVALUABLE EVENT [None]
  - EMOTIONAL DISTRESS [None]
  - STRESS [None]
  - RENAL FAILURE [None]
  - PAIN [None]
